FAERS Safety Report 11163313 (Version 1)
Quarter: 2015Q2

REPORT INFORMATION
  Report Type: Spontaneous
  Country: US (occurrence: US)
  Receive Date: 20150604
  Receipt Date: 20150604
  Transmission Date: 20150821
  Serious: No
  Sender: FDA-Public Use
  Company Number: US-009507513-1506USA001304

PATIENT
  Age: 77 Year
  Sex: Male

DRUGS (3)
  1. BELSOMRA [Suspect]
     Active Substance: SUVOREXANT
     Indication: INSOMNIA
     Dosage: 15 MG/1 TABLET FOR THE FIRST AND ONLY TIME
     Route: 048
     Dates: start: 20150529, end: 20150529
  2. EDLUAR [Concomitant]
     Active Substance: ZOLPIDEM TARTRATE
     Dosage: UNK
  3. EDLUAR [Concomitant]
     Active Substance: ZOLPIDEM TARTRATE
     Dosage: UNK
     Dates: start: 20150529

REACTIONS (3)
  - Hangover [Recovering/Resolving]
  - Drug ineffective [Recovering/Resolving]
  - Somnolence [Recovering/Resolving]

NARRATIVE: CASE EVENT DATE: 20150529
